FAERS Safety Report 5212600-X (Version None)
Quarter: 2006Q4

REPORT INFORMATION
  Report Type: 
  Country: None (occurrence: None)
  Receive Date: 20061102
  Receipt Date: 20060110
  Transmission Date: 20070319
  Serious: Yes (Other)
  Sender: FDA-Public Use
  Company Number: 23752

PATIENT
  Age: 11 Year
  Sex: Female
  Weight: 59 kg

DRUGS (1)
  1. METHOTREXATE [Suspect]
     Dosage: 15MG/INTRATHECAL
     Route: 037
     Dates: start: 20051222

REACTIONS (1)
  - NERVOUS SYSTEM DISORDER [None]
